FAERS Safety Report 5029129-4 (Version None)
Quarter: 2006Q2

REPORT INFORMATION
  Report Type: 
  Country: None (occurrence: None)
  Receive Date: 20060615
  Receipt Date: 20060615
  Transmission Date: 20061013
  Serious: Yes (Other)
  Sender: FDA-Public Use
  Company Number: None

PATIENT
  Age: 38 Year
  Sex: Female
  Weight: 74.8435 kg

DRUGS (1)
  1. LEUPROLIDE  1 MG/.2ML  SICOR [Suspect]
     Indication: IN VITRO FERTILISATION
     Dosage: .1 CC  DAILY  SQ
     Route: 058
     Dates: start: 20060610, end: 20060610

REACTIONS (5)
  - INJECTION SITE ERYTHEMA [None]
  - INJECTION SITE HYPERSENSITIVITY [None]
  - INJECTION SITE SWELLING [None]
  - INJECTION SITE WARMTH [None]
  - PHARMACEUTICAL PRODUCT COMPLAINT [None]
